FAERS Safety Report 4636183-8 (Version None)
Quarter: 2005Q2

REPORT INFORMATION
  Report Type: 
  Country: None (occurrence: None)
  Receive Date: 20050413
  Receipt Date: 20050413
  Transmission Date: 20051028
  Serious: No
  Sender: FDA-Public Use
  Company Number: None

PATIENT
  Age: 50 Year
  Sex: Male
  Weight: 77.1115 kg

DRUGS (2)
  1. DURAGESIC-75 [Suspect]
     Indication: PAIN
     Dosage: 75 MCG TRRANSDERM Q48H
     Route: 062
     Dates: start: 20050201
  2. DURAGESIC-75 [Suspect]

REACTIONS (2)
  - INADEQUATE ANALGESIA [None]
  - PHARMACEUTICAL PRODUCT COMPLAINT [None]
